FAERS Safety Report 6287073-9 (Version None)
Quarter: 2009Q3

REPORT INFORMATION
  Report Type: 
  Country: None (occurrence: None)
  Receive Date: 20090728
  Receipt Date: 20090722
  Transmission Date: 20100115
  Serious: Yes (Hospitalization)
  Sender: FDA-Public Use
  Company Number: JP-AVENTIS-200910759JP

PATIENT
  Age: 51 Year
  Sex: Female
  Weight: 67 kg

DRUGS (8)
  1. ALLEGRA [Suspect]
     Route: 048
     Dates: start: 20090308, end: 20090310
  2. ALLEGRA [Suspect]
     Indication: NASAL CONGESTION
     Route: 048
     Dates: start: 20090308, end: 20090310
  3. ALLELOCK [Suspect]
     Route: 048
     Dates: start: 20090310, end: 20090312
  4. RENIVACE [Concomitant]
     Indication: HYPERTENSION
     Dates: start: 20060101
  5. CRESTOR [Concomitant]
     Dates: start: 20060101
  6. ADALAT [Concomitant]
     Indication: HYPERTENSION
     Dates: start: 20060101
  7. CHLOCODEMIN [Concomitant]
     Dates: start: 20090310
  8. ANTEBATE [Concomitant]
     Dates: start: 20090310

REACTIONS (3)
  - BLISTER [None]
  - ECZEMA [None]
  - INTENTIONAL DRUG MISUSE [None]
